FAERS Safety Report 10336217 (Version 1)
Quarter: 2014Q3

REPORT INFORMATION
  Report Type: Spontaneous
  Country: JP (occurrence: JP)
  Receive Date: 20140723
  Receipt Date: 20140723
  Transmission Date: 20150326
  Serious: Yes (Death)
  Sender: FDA-Public Use
  Company Number: PHHY2012JP132774

PATIENT
  Age: 57 Year
  Sex: Male

DRUGS (1)
  1. TASIGNA [Suspect]
     Active Substance: NILOTINIB
     Indication: CHRONIC MYELOID LEUKAEMIA
     Dosage: 150 MG, DAILY
     Dates: start: 20120423

REACTIONS (4)
  - Pancreatic carcinoma [Fatal]
  - White blood cell count increased [Unknown]
  - Second primary malignancy [Fatal]
  - Platelet count increased [Unknown]
